FAERS Safety Report 17800465 (Version 1)
Quarter: 2020Q2

REPORT INFORMATION
  Report Type: Spontaneous
  Country: GB (occurrence: GB)
  Receive Date: 20200518
  Receipt Date: 20200518
  Transmission Date: 20200714
  Serious: Yes (Other)
  Sender: FDA-Public Use
  Company Number: GB-FOUNDATIONCONSUMERHC-2020-UK-000099

PATIENT
  Age: 26 Year
  Sex: Female
  Weight: 73.02 kg

DRUGS (3)
  1. ETHINYLESTRADIOL;LEVONORGESTREL [Suspect]
     Active Substance: ETHINYL ESTRADIOL\LEVONORGESTREL
     Indication: CONTRACEPTION
     Dosage: 1 LEVONELLE PILL ON 3 FEBRUARY AND ONE COC PILL FROM 4 FEBRUARY FOR 3 WEEKS AND 3 DAYS
     Route: 048
     Dates: start: 20200204, end: 20200228
  2. CITALOPRAM HYDROBROMIDE. [Concomitant]
     Active Substance: CITALOPRAM HYDROBROMIDE
  3. LEVONORGESTREL (UNSPECIFIED) [Suspect]
     Active Substance: LEVONORGESTREL
     Indication: CONTRACEPTION
     Dosage: 1 LEVONELLE PILL ON 3 FEBRUARY AND ONE COC PILL FROM 4 FEBRUARY FOR 3 WEEKS AND 3 DAYS
     Route: 048
     Dates: start: 20200203, end: 20200227

REACTIONS (1)
  - Herpes simplex reactivation [Recovered/Resolved]

NARRATIVE: CASE EVENT DATE: 20200206
